FAERS Safety Report 8954335 (Version 1)
Quarter: 2012Q4

REPORT INFORMATION
  Report Type: 
  Country: US (occurrence: US)
  Receive Date: 20121207
  Receipt Date: 20121207
  Transmission Date: 20130627
  Serious: No
  Sender: FDA-Public Use
  Company Number: US-VERTEX PHARMACEUTICALS INC.-2012-025592

PATIENT
  Age: 57 Year
  Sex: Female
  Weight: 81 kg

DRUGS (7)
  1. INCIVEK [Suspect]
     Indication: HEPATITIS C
     Dosage: 750 mg, tid
     Route: 048
     Dates: start: 20120910, end: 20121004
  2. INCIVEK [Suspect]
     Dosage: 750 mg, tid
     Route: 048
     Dates: start: 20121019
  3. RIBAVIRIN [Suspect]
     Indication: HEPATITIS C
     Dosage: 1000 mg, qd
     Dates: start: 20120910, end: 20121004
  4. RIBAVIRIN [Suspect]
     Dosage: 1000 mg, qd
     Dates: start: 20121019
  5. RIBAVIRIN [Suspect]
     Dosage: 600 mg, qd
  6. PEGASYS [Suspect]
     Indication: HEPATITIS C
     Dosage: 180 ?g, UNK
     Route: 058
     Dates: start: 20120910, end: 20121004
  7. PEGASYS [Suspect]
     Dosage: 180 ?g, UNK
     Route: 058
     Dates: start: 20121019

REACTIONS (5)
  - White blood cell count decreased [Recovered/Resolved]
  - Pollakiuria [Recovered/Resolved]
  - Insomnia [Recovered/Resolved]
  - Fatigue [Not Recovered/Not Resolved]
  - Anaemia [Not Recovered/Not Resolved]
